FAERS Safety Report 5523112-8 (Version None)
Quarter: 2007Q4

REPORT INFORMATION
  Report Type: 
  Country: None (occurrence: None)
  Receive Date: 20071121
  Receipt Date: 20071113
  Transmission Date: 20080405
  Serious: Yes (Hospitalization, Other)
  Sender: FDA-Public Use
  Company Number: US-ROCHE-531410

PATIENT
  Age: 48 Year
  Sex: Female
  Weight: 90.7 kg

DRUGS (5)
  1. BUMEX [Suspect]
     Indication: FLUID RETENTION
     Dosage: DOSE: VARIED UNSPECIFIED DOSES
     Route: 048
     Dates: start: 19850101, end: 20071110
  2. ATENOLOL [Concomitant]
  3. SYNTHROID [Concomitant]
     Indication: HYPOTHYROIDISM
  4. SINGULAIR [Concomitant]
     Indication: ASTHMA
  5. KLONOPIN [Concomitant]
     Dates: start: 20020101

REACTIONS (5)
  - ARTHRITIS [None]
  - CORONARY ARTERY DISEASE [None]
  - DIABETES MELLITUS [None]
  - INJECTION SITE INFECTION [None]
  - UMBILICAL HERNIA [None]
